FAERS Safety Report 6376784-2 (Version None)
Quarter: 2009Q3

REPORT INFORMATION
  Report Type: 
  Country: None (occurrence: None)
  Receive Date: 20090925
  Receipt Date: 20090915
  Transmission Date: 20100115
  Serious: Yes (Other)
  Sender: FDA-Public Use
  Company Number: US-JNJFOC-20090808737

PATIENT
  Sex: Female
  Weight: 83.01 kg

DRUGS (16)
  1. REMICADE [Suspect]
     Route: 042
  2. REMICADE [Suspect]
     Indication: COLITIS ULCERATIVE
     Route: 042
  3. LIALDA [Concomitant]
     Indication: COLITIS ULCERATIVE
  4. FLAGYL [Concomitant]
     Indication: COLITIS ULCERATIVE
  5. MERCAPTOPURINE [Concomitant]
     Indication: COLITIS ULCERATIVE
  6. EFFEXOR [Concomitant]
  7. FUROSEMIDE [Concomitant]
     Indication: OEDEMA PERIPHERAL
  8. COUMADIN [Concomitant]
     Indication: DEEP VEIN THROMBOSIS
  9. HYDROCODONE [Concomitant]
  10. PREDNISONE TAB [Concomitant]
     Indication: ARTHRITIS
  11. GABAPENTIN [Concomitant]
  12. GABAPENTIN [Concomitant]
  13. FEXOFENADINE [Concomitant]
     Indication: MULTIPLE ALLERGIES
  14. VITAMIN D [Concomitant]
  15. MULTIPLE VITAMIN [Concomitant]
  16. CALCIUM [Concomitant]

REACTIONS (2)
  - ABDOMINAL PAIN [None]
  - LIVER FUNCTION TEST ABNORMAL [None]
